FAERS Safety Report 16011886 (Version 3)
Quarter: 2019Q2

REPORT INFORMATION
  Report Type: Spontaneous
  Country: JP (occurrence: JP)
  Receive Date: 20190227
  Receipt Date: 20190523
  Transmission Date: 20190711
  Serious: Yes (Life-Threatening)
  Sender: FDA-Public Use
  Company Number: JP-ELI_LILLY_AND_COMPANY-JP201902012070

PATIENT
  Sex: Male
  Weight: 63 kg

DRUGS (8)
  1. LONASEN [Concomitant]
     Active Substance: BLONANSERIN
     Indication: SCHIZOPHRENIA
     Dosage: 8 MG, DAILY
     Route: 048
     Dates: end: 20190215
  2. DULOXETINE HYDROCHLORIDE. [Suspect]
     Active Substance: DULOXETINE HYDROCHLORIDE
     Indication: SCHIZOPHRENIA
     Dosage: 20 MG, DAILY
     Route: 048
     Dates: start: 20190210, end: 20190215
  3. LYRICA [Concomitant]
     Active Substance: PREGABALIN
     Indication: SPINAL COMPRESSION FRACTURE
     Dosage: 300 MG, DAILY
     Route: 048
     Dates: end: 20190215
  4. MERCAZOLE [THIAMAZOLE] [Concomitant]
     Active Substance: METHIMAZOLE
     Indication: HYPOTHYROIDISM
     Dosage: 5 MG, DAILY
     Route: 048
     Dates: end: 20190308
  5. TOPINA [Concomitant]
     Active Substance: TOPIRAMATE
     Indication: SCHIZOPHRENIA
     Dosage: 100 MG, DAILY
     Route: 048
     Dates: end: 20190215
  6. AMITIZA [Concomitant]
     Active Substance: LUBIPROSTONE
     Indication: CONSTIPATION
     Dosage: 24 MG, DAILY
     Route: 048
     Dates: end: 20190215
  7. MAGNESIUM OXIDE. [Concomitant]
     Active Substance: MAGNESIUM OXIDE
     Indication: CONSTIPATION
     Dosage: 660 MG, DAILY
     Route: 048
     Dates: end: 20190215
  8. DEPAKENE-R [Concomitant]
     Active Substance: VALPROATE SODIUM
     Dosage: 400 MG, DAILY
     Route: 048
     Dates: end: 20190215

REACTIONS (5)
  - Off label use [Recovered/Resolved]
  - Hypothermia [Recovered/Resolved]
  - Sinus arrest [Recovered/Resolved]
  - Hypercapnia [Recovered/Resolved]
  - Depressed level of consciousness [Recovered/Resolved]

NARRATIVE: CASE EVENT DATE: 20190210
